FAERS Safety Report 13783913 (Version 1)
Quarter: 2017Q3

REPORT INFORMATION
  Report Type: Spontaneous
  Country: BE (occurrence: BE)
  Receive Date: 20170724
  Receipt Date: 20170724
  Transmission Date: 20171127
  Serious: Yes (Life-Threatening, Hospitalization)
  Sender: FDA-Public Use
  Company Number: PHHY2017BE079121

PATIENT
  Age: 70 Year
  Sex: Male

DRUGS (4)
  1. TRIMETHOPRIM SULFAMETHOXAZOLE [Concomitant]
     Active Substance: SULFAMETHOXAZOLE\TRIMETHOPRIM
     Indication: NOCARDIOSIS
     Route: 065
  2. AMIODARONE [Suspect]
     Active Substance: AMIODARONE
     Indication: ATRIAL FIBRILLATION
     Dosage: UNK
     Route: 065
  3. MOXIFLOXACIN. [Concomitant]
     Active Substance: MOXIFLOXACIN
     Indication: NOCARDIOSIS
     Route: 065
  4. PHENPROCOUMON [Concomitant]
     Active Substance: PHENPROCOUMON
     Indication: PRODUCT USED FOR UNKNOWN INDICATION
     Route: 065

REACTIONS (17)
  - Hypothermia [Unknown]
  - Dyspnoea [Recovering/Resolving]
  - Microcytic anaemia [Unknown]
  - Renal impairment [Unknown]
  - Tri-iodothyronine decreased [Unknown]
  - Altered state of consciousness [Not Recovered/Not Resolved]
  - Bradycardia [Unknown]
  - Thyroxine free decreased [Unknown]
  - Dysarthria [Unknown]
  - Myxoedema coma [Unknown]
  - Coagulopathy [Unknown]
  - Respiratory depression [Unknown]
  - Respiratory acidosis [Unknown]
  - Macroglossia [Unknown]
  - Cognitive disorder [Unknown]
  - Hepatic function abnormal [Unknown]
  - Amnesia [Unknown]
